FAERS Safety Report 24164801 (Version 1)
Quarter: 2024Q3

REPORT INFORMATION
  Report Type: Spontaneous
  Country: CN (occurrence: CN)
  Receive Date: 20240801
  Receipt Date: 20240801
  Transmission Date: 20241017
  Serious: Yes (Other)
  Sender: Chengdu Suncadia Medicine
  Company Number: CN-Chengdu Suncadia Medicine Co., Ltd.-2159907

PATIENT
  Age: 33 Year
  Sex: Female

DRUGS (3)
  1. TACROLIMUS [Suspect]
     Active Substance: TACROLIMUS
     Indication: Immunosuppressant drug therapy
  2. AZATHIOPRINE [Suspect]
     Active Substance: AZATHIOPRINE
  3. METHYLPREDNISOLONE [Suspect]
     Active Substance: METHYLPREDNISOLONE

REACTIONS (4)
  - Premature labour [Recovered/Resolved]
  - Maternal exposure timing unspecified [Recovered/Resolved]
  - Anaemia [Unknown]
  - Hypertension [Unknown]
